FAERS Safety Report 13529261 (Version 1)
Quarter: 2017Q2

REPORT INFORMATION
  Report Type: Spontaneous
  Country: US (occurrence: US)
  Receive Date: 20170509
  Receipt Date: 20170509
  Transmission Date: 20170830
  Serious: Yes (Other)
  Sender: FDA-Public Use
  Company Number: US-ROCHE-GNE302506

PATIENT
  Age: 69 Year
  Sex: Female
  Weight: 90.8 kg

DRUGS (2)
  1. XOLAIR [Suspect]
     Active Substance: OMALIZUMAB
     Indication: ASTHMA
     Dosage: 300 MG, Q2W
     Route: 058
     Dates: start: 200607
  2. IVIG [Concomitant]
     Active Substance: HUMAN IMMUNOGLOBULIN G
     Indication: PRODUCT USED FOR UNKNOWN INDICATION
     Dosage: 40 G, Q4W
     Route: 065

REACTIONS (3)
  - Blood immunoglobulin G decreased [None]
  - Infection [None]
  - Breast cancer [Unknown]

NARRATIVE: CASE EVENT DATE: 201006
